FAERS Safety Report 7195893-1 (Version None)
Quarter: 2010Q4

REPORT INFORMATION
  Report Type: 
  Country: None (occurrence: None)
  Receive Date: 20101223
  Receipt Date: 20101011
  Transmission Date: 20110411
  Serious: No
  Sender: FDA-Public Use
  Company Number: US-AMGEN-KDL444399

PATIENT

DRUGS (1)
  1. ENBREL [Suspect]
     Indication: PSORIASIS
     Dosage: UNK UNK, UNK
     Dates: start: 20100101, end: 20100922

REACTIONS (1)
  - POLLAKIURIA [None]
